FAERS Safety Report 9691403 (Version 2)
Quarter: 2013Q4

REPORT INFORMATION
  Report Type: Spontaneous
  Country: AT (occurrence: AT)
  Receive Date: 20131115
  Receipt Date: 20131115
  Transmission Date: 20140711
  Serious: Yes (Hospitalization, Other)
  Sender: FDA-Public Use
  Company Number: AT-ABBVIE-13P-009-1161397-00

PATIENT
  Age: 74 Year
  Sex: Female

DRUGS (11)
  1. HUMIRA [Suspect]
     Indication: ARTHRITIS
     Route: 058
     Dates: start: 201211, end: 201309
  2. EBETREXAT [Suspect]
     Indication: PRODUCT USED FOR UNKNOWN INDICATION
  3. FOLSAN [Concomitant]
     Indication: PRODUCT USED FOR UNKNOWN INDICATION
  4. COMBITHYREX [Concomitant]
     Indication: PRODUCT USED FOR UNKNOWN INDICATION
  5. UROSIN [Concomitant]
     Indication: PRODUCT USED FOR UNKNOWN INDICATION
  6. FOSICOMB [Concomitant]
     Indication: PRODUCT USED FOR UNKNOWN INDICATION
  7. MOXONIBENE [Concomitant]
     Indication: PRODUCT USED FOR UNKNOWN INDICATION
  8. THROMBO ASS [Concomitant]
     Indication: PRODUCT USED FOR UNKNOWN INDICATION
  9. CAL-D-VITA [Concomitant]
     Indication: PRODUCT USED FOR UNKNOWN INDICATION
  10. DICLOFENAC [Concomitant]
     Indication: PRODUCT USED FOR UNKNOWN INDICATION
  11. BONIVA [Concomitant]
     Indication: PRODUCT USED FOR UNKNOWN INDICATION

REACTIONS (3)
  - Gastritis [Recovered/Resolved]
  - Urosepsis [Recovered/Resolved]
  - Colitis [Recovered/Resolved]
